FAERS Safety Report 14045362 (Version 1)
Quarter: 2017Q4

REPORT INFORMATION
  Report Type: Report from Study
  Country: ES (occurrence: ES)
  Receive Date: 20171005
  Receipt Date: 20171005
  Transmission Date: 20180321
  Serious: Yes (Death, Other)
  Sender: FDA-Public Use
  Company Number: ES-ROCHE-1952418

PATIENT

DRUGS (6)
  1. METHYLPREDNISOLONE. [Suspect]
     Active Substance: METHYLPREDNISOLONE
     Indication: PROPHYLAXIS AGAINST TRANSPLANT REJECTION
     Dosage: 500 MG OR LESS ON DAY 0 AND 125 MG ON DAY 1
     Route: 040
  2. PREDNISONE. [Suspect]
     Active Substance: PREDNISONE
     Indication: PROPHYLAXIS AGAINST TRANSPLANT REJECTION
     Dosage: ON DAYS 214, 15 MG/DAY ON DAYS 15-28, AND 10 MG/DAY FROM DAY 29 ONWARDS.
     Route: 048
  3. MYCOPHENOLATE MOFETIL. [Suspect]
     Active Substance: MYCOPHENOLATE MOFETIL
     Indication: PROPHYLAXIS AGAINST TRANSPLANT REJECTION
     Dosage: WITHIN 72 HOURS OF REPERFUSION. MMF WAS DISCONTINUED COMPLETELY ON DAY 92 IN THE MMF STOP GROUP
     Route: 065
  4. PREDNISONE. [Suspect]
     Active Substance: PREDNISONE
     Dosage: 15 MG/DAY ON DAYS 15-28
     Route: 048
  5. PREDNISONE. [Suspect]
     Active Substance: PREDNISONE
     Dosage: ON 29 ONWARDS
     Route: 048
  6. TACROLIMUS. [Suspect]
     Active Substance: TACROLIMUS
     Indication: PROPHYLAXIS AGAINST TRANSPLANT REJECTION
     Dosage: 0.2 MG/KG/DAY GIVEN IN TWO DIVIDED DOSES.
     Route: 065

REACTIONS (7)
  - Fracture [Unknown]
  - Arthropathy [Unknown]
  - Bone disorder [Unknown]
  - Lymphoma [Fatal]
  - Cytomegalovirus infection [Unknown]
  - Neoplasm malignant [Fatal]
  - BK virus infection [Unknown]
